FAERS Safety Report 15700007 (Version 1)
Quarter: 2018Q4

REPORT INFORMATION
  Report Type: Spontaneous
  Country: JP (occurrence: JP)
  Receive Date: 20181207
  Receipt Date: 20181207
  Transmission Date: 20190205
  Serious: Yes (Hospitalization, Other)
  Sender: FDA-Public Use
  Company Number: JP-ASTRAZENECA-2018SF24105

PATIENT
  Age: 28797 Day
  Sex: Male
  Weight: 70 kg

DRUGS (14)
  1. TSUMURA GOSHAJINKIGAN EXTRACT GRANULES FOR ETHICAL USE [Concomitant]
     Route: 048
  2. CARBOCISTEINE LYSINE [Concomitant]
     Active Substance: CARBOCYSTEINE LYSINE
     Route: 048
  3. FUROSEDON [Concomitant]
     Route: 048
  4. EQUA [Concomitant]
     Active Substance: VILDAGLIPTIN
     Route: 048
  5. URIEF OD [Concomitant]
     Route: 048
  6. DESALEX [Concomitant]
     Active Substance: DESLORATADINE
     Route: 048
  7. VERAPAMIL HYDROCHLORIDE. [Concomitant]
     Active Substance: VERAPAMIL HYDROCHLORIDE
     Route: 048
  8. HALFDIGOXIN [Concomitant]
     Active Substance: DIGOXIN
     Route: 048
  9. VOGLIBOSE [Concomitant]
     Active Substance: VOGLIBOSE
     Route: 048
  10. IMFINZI [Suspect]
     Active Substance: DURVALUMAB
     Indication: NON-SMALL CELL LUNG CANCER
     Route: 041
     Dates: start: 20180905, end: 20180905
  11. ATENOLOL. [Concomitant]
     Active Substance: ATENOLOL
     Route: 048
  12. FEBURIC [Concomitant]
     Active Substance: FEBUXOSTAT
     Route: 048
  13. XARELTO [Concomitant]
     Active Substance: RIVAROXABAN
     Route: 048
  14. AZOSEMIDE [Concomitant]
     Active Substance: AZOSEMIDE
     Route: 048

REACTIONS (3)
  - Physical deconditioning [Unknown]
  - Colitis [Recovered/Resolved]
  - Radiation pneumonitis [Recovering/Resolving]

NARRATIVE: CASE EVENT DATE: 20180907
